FAERS Safety Report 8598191-4 (Version None)
Quarter: 2012Q3

REPORT INFORMATION
  Report Type: 
  Country: None (occurrence: None)
  Receive Date: 20120802
  Receipt Date: 20120724
  Transmission Date: 20120928
  Serious: Yes (Hospitalization, Other)
  Sender: FDA-Public Use
  Company Number: 2012-002646

PATIENT
  Age: 64 Year
  Sex: Female

DRUGS (7)
  1. MULTIVIT (VITAMINS NOS) [Concomitant]
  2. ALLEGRA [Concomitant]
  3. CALCIUM WITH VITAMIN D /00944201/ (CALCIUM CARBONATE, COLECALCIFEROL) [Concomitant]
  4. SYNTHROID [Concomitant]
  5. ACTONEL [Suspect]
     Indication: OSTEOPENIA
     Dosage: 35 MG ONCE WEEKLY, ORAL
     Route: 048
     Dates: start: 20050101, end: 20110101
  6. VITAMIN D [Concomitant]
  7. FLONASE [Concomitant]

REACTIONS (3)
  - FEMUR FRACTURE [None]
  - PAIN IN EXTREMITY [None]
  - STRESS FRACTURE [None]
